FAERS Safety Report 7206752-X (Version None)
Quarter: 2010Q4

REPORT INFORMATION
  Report Type: 
  Country: None (occurrence: None)
  Receive Date: 20101217
  Receipt Date: 20101205
  Transmission Date: 20110411
  Serious: Yes (Other)
  Sender: FDA-Public Use
  Company Number: 1000017643

PATIENT
  Age: 47 Year
  Sex: Female

DRUGS (14)
  1. SAVELLA [Suspect]
     Indication: FIBROMYALGIA
     Dosage: SEE IMAGE
     Route: 048
     Dates: start: 20101104, end: 20101104
  2. SAVELLA [Suspect]
     Indication: FIBROMYALGIA
     Dosage: SEE IMAGE
     Route: 048
     Dates: start: 20101105, end: 20101106
  3. SAVELLA [Suspect]
     Indication: FIBROMYALGIA
     Dosage: SEE IMAGE
     Route: 048
     Dates: start: 20101107, end: 20101110
  4. SAVELLA [Suspect]
     Indication: FIBROMYALGIA
     Dosage: SEE IMAGE
     Route: 048
     Dates: start: 20101111, end: 20101121
  5. SAVELLA [Suspect]
     Indication: FIBROMYALGIA
     Dosage: 100 MG EVERY MORNING, 50 MG EVERY EVENING (2 IN 1 D), ORAL
     Dates: start: 20101122, end: 20101204
  6. CYMBALTA [Suspect]
     Indication: FIBROMYALGIA
     Dosage: 60 MG (60 MG, 1 IN1 D),ORAL; TAPERED DOSE UNTIL DISCONTINUED,ORAL
     Route: 048
     Dates: end: 20101114
  7. CYMBALTA [Suspect]
     Indication: FIBROMYALGIA
     Dosage: 60 MG (60 MG, 1 IN1 D),ORAL; TAPERED DOSE UNTIL DISCONTINUED,ORAL
     Route: 048
     Dates: start: 20101201, end: 20101202
  8. WELCHOL [Suspect]
     Indication: BLOOD CHOLESTEROL INCREASED
     Dosage: 3750 MG (1875 MG, 2 IN 1 D),ORAL
     Route: 048
     Dates: start: 20101201, end: 20101202
  9. ATENOLOL [Concomitant]
  10. TRIAMTERENE (TRIAMETERENE) (TRIAMETERENE) [Concomitant]
  11. HYDROCHLOROTHIAZIDE (HYDROCHLORITHAZIDE) (HYDROCHLOROTHIAZIDE) [Concomitant]
  12. ZETIA (EZETIMBE)  (EZETIMIBE) [Concomitant]
  13. CELEBREX [Concomitant]
  14. WELLBUTRIN XL [Concomitant]

REACTIONS (13)
  - ABNORMAL DREAMS [None]
  - ANXIETY [None]
  - BLOOD PRESSURE INCREASED [None]
  - EYE SWELLING [None]
  - HEART RATE INCREASED [None]
  - HYPERSENSITIVITY [None]
  - LIP SWELLING [None]
  - MUSCLE SPASMS [None]
  - PSYCHOTIC DISORDER [None]
  - SERUM SEROTONIN INCREASED [None]
  - THROAT TIGHTNESS [None]
  - URTICARIA [None]
  - VISION BLURRED [None]
